FAERS Safety Report 17979591 (Version 1)
Quarter: 2020Q3

REPORT INFORMATION
  Report Type: Spontaneous
  Country: US (occurrence: US)
  Receive Date: 20200703
  Receipt Date: 20200703
  Transmission Date: 20201103
  Serious: Yes (Congenital Anomaly, Other)
  Sender: FDA-Public Use
  Company Number: US-MICRO LABS LIMITED-ML2020-01979

PATIENT

DRUGS (10)
  1. CODEINE [Suspect]
     Active Substance: CODEINE
  2. FOLIC ACID. [Suspect]
     Active Substance: FOLIC ACID
  3. PREDNISONE. [Suspect]
     Active Substance: PREDNISONE
  4. AMITRIPTYLINE [Suspect]
     Active Substance: AMITRIPTYLINE
  5. OMEPRAZOLE. [Suspect]
     Active Substance: OMEPRAZOLE
  6. CELECOXIB. [Suspect]
     Active Substance: CELECOXIB
  7. PAMIDRONIC ACID [Suspect]
     Active Substance: PAMIDRONIC ACID
  8. LABETALOL [Suspect]
     Active Substance: LABETALOL\LABETALOL HYDROCHLORIDE
  9. PARACETAMOL [Suspect]
     Active Substance: ACETAMINOPHEN
  10. METHOTREXATE. [Suspect]
     Active Substance: METHOTREXATE

REACTIONS (3)
  - Multiple congenital abnormalities [Unknown]
  - Foetal exposure during pregnancy [Unknown]
  - Premature baby [Unknown]
